FAERS Safety Report 7924831-6 (Version None)
Quarter: 2011Q4

REPORT INFORMATION
  Report Type: 
  Country: None (occurrence: None)
  Receive Date: 20111118
  Receipt Date: 20111104
  Transmission Date: 20120403
  Serious: Yes (Hospitalization)
  Sender: FDA-Public Use
  Company Number: US-BRISTOL-MYERS SQUIBB COMPANY-16216301

PATIENT
  Age: 70 Year
  Sex: Female
  Weight: 67 kg

DRUGS (23)
  1. AMBIEN [Concomitant]
  2. SIMVASTATIN [Concomitant]
  3. MOUTHWASH [Concomitant]
  4. TAXOL [Suspect]
     Indication: NON-SMALL CELL LUNG CANCER
     Dosage: LAST DOSE:26OCT11
     Dates: start: 20110928
  5. ALLOPURINOL [Concomitant]
  6. CARBOPLATIN [Suspect]
     Indication: NON-SMALL CELL LUNG CANCER
     Dosage: LAST DOSE:26OCT11
     Dates: start: 20110928
  7. EMLA [Concomitant]
     Route: 061
  8. ROBITUSSIN AC [Concomitant]
  9. ZITHROMAX [Concomitant]
  10. COMPAZINE [Concomitant]
  11. COLACE [Concomitant]
  12. MAGNESIUM HYDROXIDE TAB [Concomitant]
  13. FLUTICASONE PROPIONATE [Concomitant]
  14. GABAPENTIN [Concomitant]
  15. METFORMIN HCL [Concomitant]
  16. TESSALON [Concomitant]
  17. VICODIN [Concomitant]
  18. ADVAIR DISKUS 100/50 [Concomitant]
  19. ASPIRIN [Concomitant]
  20. DIOVAN [Concomitant]
  21. OMEPRAZOLE [Concomitant]
  22. ROXICODONE [Concomitant]
  23. MORPHINE SULFATE [Concomitant]
     Route: 055

REACTIONS (4)
  - PNEUMONITIS [None]
  - OESOPHAGITIS [None]
  - NEUTROPHIL COUNT DECREASED [None]
  - COUGH [None]
